FAERS Safety Report 6526029-5 (Version None)
Quarter: 2009Q4

REPORT INFORMATION
  Report Type: 
  Country: None (occurrence: None)
  Receive Date: 20091224
  Receipt Date: 20091210
  Transmission Date: 20100525
  Serious: Yes (Hospitalization)
  Sender: FDA-Public Use
  Company Number: 2009003811

PATIENT
  Age: 62 Year
  Sex: Female

DRUGS (2)
  1. TARCEVA [Suspect]
     Indication: LUNG NEOPLASM MALIGNANT
     Dosage: (150 MG), ORAL
     Route: 048
     Dates: start: 20080101
  2. SPIRONOLACTONE [Concomitant]

REACTIONS (3)
  - MUCOUS MEMBRANE DISORDER [None]
  - PERIPHERAL EMBOLISM [None]
  - RASH [None]
